FAERS Safety Report 16196055 (Version 4)
Quarter: 2019Q4

REPORT INFORMATION
  Report Type: Spontaneous
  Country: JP (occurrence: JP)
  Receive Date: 20190415
  Receipt Date: 20191011
  Transmission Date: 20200122
  Serious: Yes (Death, Disabling)
  Sender: FDA-Public Use
  Company Number: JP-ACTELION-A-CH2019-189195

PATIENT
  Age: 61 Year
  Sex: Female
  Weight: 69.2 kg

DRUGS (5)
  1. SAMSCA [Concomitant]
     Active Substance: TOLVAPTAN
  2. UPTRAVI [Suspect]
     Active Substance: SELEXIPAG
     Dosage: 0.2 MG, BID
     Route: 048
     Dates: start: 20190305, end: 20190313
  3. ADEMPAS [Concomitant]
     Active Substance: RIOCIGUAT
     Indication: PULMONARY ARTERIAL HYPERTENSION
  4. UPTRAVI [Suspect]
     Active Substance: SELEXIPAG
     Indication: PULMONARY ARTERIAL HYPERTENSION
     Dosage: 0.4 MG, BID
     Route: 048
     Dates: start: 20190314, end: 20190326
  5. OPSUMIT [Suspect]
     Active Substance: MACITENTAN
     Indication: PULMONARY ARTERIAL HYPERTENSION
     Dosage: 10 MG, QD
     Route: 048
     Dates: start: 201903, end: 201903

REACTIONS (6)
  - Atrial septal defect [Fatal]
  - Pulmonary arterial hypertension [Fatal]
  - Condition aggravated [Fatal]
  - Retroperitoneal haematoma [Fatal]
  - Diarrhoea [Unknown]
  - Liver disorder [Not Recovered/Not Resolved]

NARRATIVE: CASE EVENT DATE: 2019
